FAERS Safety Report 7576685-8 (Version None)
Quarter: 2011Q2

REPORT INFORMATION
  Report Type: 
  Country: None (occurrence: None)
  Receive Date: 20110624
  Receipt Date: 20110624
  Transmission Date: 20111010
  Serious: Yes (Other)
  Sender: FDA-Public Use
  Company Number: None

PATIENT
  Age: 63 Year
  Sex: Male
  Weight: 86.1834 kg

DRUGS (7)
  1. WELCHOL [Concomitant]
  2. MULTI-VITAMIN [Concomitant]
  3. METOPROLOL TARTRATE [Concomitant]
  4. LOVAZA [Concomitant]
  5. OMEPRAZOLE [Concomitant]
  6. VYTORIN [Suspect]
     Indication: BLOOD CHOLESTEROL INCREASED
     Dosage: 1 TAB DAILY
     Dates: start: 20080101
  7. GLUCOSAMINE [Concomitant]

REACTIONS (3)
  - MUSCULOSKELETAL PAIN [None]
  - ASTHENIA [None]
  - MUSCULOSKELETAL DISORDER [None]
